FAERS Safety Report 23753402 (Version 2)
Quarter: 2024Q2

REPORT INFORMATION
  Report Type: Spontaneous
  Country: GB (occurrence: GB)
  Receive Date: 20240417
  Receipt Date: 20240424
  Transmission Date: 20240716
  Serious: Yes (Life-Threatening, Other)
  Sender: FDA-Public Use
  Company Number: None

PATIENT
  Age: 47 Year
  Sex: Female
  Weight: 58 kg

DRUGS (3)
  1. DOCETAXEL [Suspect]
     Active Substance: DOCETAXEL\DOCETAXEL ANHYDROUS
     Indication: Breast cancer
     Dosage: 75 MG
     Dates: start: 20240103, end: 20240214
  2. INSULIN HUMAN [Concomitant]
     Active Substance: INSULIN HUMAN
     Indication: Diabetes mellitus
     Dates: start: 19790401
  3. TAMOXIFEN [Concomitant]
     Active Substance: TAMOXIFEN
     Indication: Breast cancer
     Dates: start: 20230801, end: 20231101

REACTIONS (6)
  - Depression suicidal [Recovering/Resolving]
  - Depression [Recovering/Resolving]
  - Cognitive disorder [Recovering/Resolving]
  - Memory impairment [Unknown]
  - Gait disturbance [Unknown]
  - Mental impairment [Unknown]

NARRATIVE: CASE EVENT DATE: 20240108
